FAERS Safety Report 5961626-7 (Version None)
Quarter: 2008Q4

REPORT INFORMATION
  Report Type: 
  Country: None (occurrence: None)
  Receive Date: 20081121
  Receipt Date: 20081110
  Transmission Date: 20090506
  Serious: Yes (Other)
  Sender: FDA-Public Use
  Company Number: DE-WATSON-2008-06640

PATIENT

DRUGS (1)
  1. TRIAMCINOLONE ACETONIDE [Suspect]
     Indication: ARTHRITIS
     Dosage: 25 MG, SINGLE INTRAVITREAL
     Route: 031

REACTIONS (3)
  - DEPOSIT EYE [None]
  - OPTIC ATROPHY [None]
  - VISUAL ACUITY REDUCED [None]
